FAERS Safety Report 14110464 (Version 10)
Quarter: 2018Q2

REPORT INFORMATION
  Report Type: Report from Study
  Country: US (occurrence: US)
  Receive Date: 20171020
  Receipt Date: 20180410
  Transmission Date: 20180711
  Serious: Yes (Other)
  Sender: FDA-Public Use
  Company Number: US-PFIZER INC-2017413654

PATIENT
  Age: 71 Year
  Sex: Female

DRUGS (11)
  1. SUTENT [Suspect]
     Active Substance: SUNITINIB MALATE
     Dosage: 25 MG, CYCLIC (DAILY 2 WEEKS ON 1 WEEK OFF)
     Route: 048
     Dates: start: 20170901, end: 20171204
  2. SUTENT [Suspect]
     Active Substance: SUNITINIB MALATE
     Dosage: 25 MG, CYCLIC (EVERY OTHER DAY 2 WEEKS ON 1 WEEK OFF)
     Route: 048
     Dates: start: 20171205, end: 20180217
  3. SIMVASTATIN. [Concomitant]
     Active Substance: SIMVASTATIN
     Dosage: 20 MG, UNK
  4. SUTENT [Suspect]
     Active Substance: SUNITINIB MALATE
     Indication: RENAL CELL CARCINOMA
     Dosage: 25 MG, CYCLIC, DAILY
     Route: 048
     Dates: start: 20170901, end: 20170922
  5. SUTENT [Suspect]
     Active Substance: SUNITINIB MALATE
     Dosage: 25 MG, CYCLIC (EVERY OTHER DAY 2 WEEKS ON 1 WEEK OFF)
     Route: 048
     Dates: start: 20170901
  6. SUTENT [Suspect]
     Active Substance: SUNITINIB MALATE
     Dosage: 25 MG, ALTERNATE DAY (EVERY OTHER DAY)
     Route: 048
     Dates: start: 20170901, end: 20180217
  7. LOSARTAN. [Concomitant]
     Active Substance: LOSARTAN
     Dosage: 25 MG, UNK
  8. LEVOTHYROXINE. [Concomitant]
     Active Substance: LEVOTHYROXINE
     Dosage: 50 UG, UNK
  9. SUTENT [Suspect]
     Active Substance: SUNITINIB MALATE
     Dosage: 50 MG, UNK
     Dates: start: 20170929
  10. SUTENT [Suspect]
     Active Substance: SUNITINIB MALATE
     Dosage: 25 MG, CYCLIC (DAILY 21 DAYS ON 7 DAYS OFF)
     Route: 048
  11. ASPIRIN. [Concomitant]
     Active Substance: ASPIRIN
     Dosage: 81 MG, UNK

REACTIONS (14)
  - Hair growth abnormal [Unknown]
  - Change of bowel habit [Recovering/Resolving]
  - Vaginal haemorrhage [Unknown]
  - Fatigue [Unknown]
  - Pneumonia [Unknown]
  - Frequent bowel movements [Recovered/Resolved]
  - Epistaxis [Unknown]
  - Product use issue [Unknown]
  - Cytopenia [Recovering/Resolving]
  - Pulmonary oedema [Not Recovered/Not Resolved]
  - Rectal haemorrhage [Unknown]
  - Platelet count decreased [Recovered/Resolved]
  - Diarrhoea [Recovering/Resolving]
  - Anaemia [Unknown]

NARRATIVE: CASE EVENT DATE: 2017
